FAERS Safety Report 16498556 (Version 1)
Quarter: 2019Q2

REPORT INFORMATION
  Report Type: Spontaneous
  Country: GB (occurrence: GB)
  Receive Date: 20190629
  Receipt Date: 20190629
  Transmission Date: 20190711
  Serious: Yes (Other)
  Sender: FDA-Public Use
  Company Number: GB-JNJFOC-20190631424

PATIENT
  Age: 39 Year
  Sex: Female
  Weight: 50.8 kg

DRUGS (5)
  1. BECONASE AQ [Concomitant]
     Active Substance: BECLOMETHASONE DIPROPIONATE MONOHYDRATE
     Indication: SINUS DISORDER
     Route: 065
  2. SAINSBURYS PARACETAMOL [Concomitant]
     Indication: MIGRAINE
     Route: 065
  3. BENADRYL ONE A DAY RELIEF [CETIRIZINE DIHYDROCHLORIDE] [Suspect]
     Active Substance: CETIRIZINE HYDROCHLORIDE
     Indication: SEASONAL ALLERGY
     Route: 048
     Dates: start: 20190525, end: 20190525
  4. PROCHLORPERAZINE. [Concomitant]
     Active Substance: PROCHLORPERAZINE
     Indication: VERTIGO
     Route: 065
  5. GALPHARM HEALTHCARE IBUPROFEN [Concomitant]
     Active Substance: IBUPROFEN
     Indication: MIGRAINE
     Route: 065

REACTIONS (7)
  - Somnolence [Unknown]
  - Hypersomnia [Recovering/Resolving]
  - Headache [Unknown]
  - Hypotonia [Unknown]
  - Hypoaesthesia [Unknown]
  - Fatigue [Unknown]
  - Slow speech [Recovered/Resolved]

NARRATIVE: CASE EVENT DATE: 20190525
